FAERS Safety Report 6509850-9 (Version None)
Quarter: 2009Q4

REPORT INFORMATION
  Report Type: 
  Country: None (occurrence: None)
  Receive Date: 20091222
  Receipt Date: 20091214
  Transmission Date: 20100525
  Serious: Yes (Other)
  Sender: FDA-Public Use
  Company Number: US-JNJFOC-20091205313

PATIENT
  Age: 75 Year
  Sex: Female
  Weight: 72.58 kg

DRUGS (7)
  1. TYLENOL (CAPLET) [Suspect]
     Route: 048
  2. TYLENOL (CAPLET) [Suspect]
     Indication: ARTHRALGIA
     Route: 048
  3. METFORMIN HCL [Concomitant]
     Indication: DIABETES MELLITUS
  4. WARFARIN SODIUM [Concomitant]
     Indication: ATRIAL FIBRILLATION
  5. LISINOPRIL [Concomitant]
     Indication: HYPERTENSION
  6. GLIPIZIDE [Concomitant]
     Indication: DIABETES MELLITUS
  7. PROBIOTICS [Concomitant]
     Indication: NUTRITIONAL SUPPORT

REACTIONS (2)
  - HALLUCINATION [None]
  - INCORRECT DRUG ADMINISTRATION DURATION [None]
